FAERS Safety Report 15767308 (Version 1)
Quarter: 2018Q4

REPORT INFORMATION
  Report Type: Report from Study
  Country: US (occurrence: US)
  Receive Date: 20181227
  Receipt Date: 20181227
  Transmission Date: 20190205
  Serious: Yes (Hospitalization, Other)
  Sender: FDA-Public Use
  Company Number: US-GILEAD-2018-0381827

PATIENT
  Age: 38 Year
  Sex: Female

DRUGS (16)
  1. TIZANIDINE. [Concomitant]
     Active Substance: TIZANIDINE
  2. CLONAZEPAM. [Concomitant]
     Active Substance: CLONAZEPAM
  3. ESOMEPRAZOLE. [Concomitant]
     Active Substance: ESOMEPRAZOLE MAGNESIUM
  4. GABAPENTIN. [Concomitant]
     Active Substance: GABAPENTIN
  5. RANITIDINE. [Concomitant]
     Active Substance: RANITIDINE
  6. TRAZODONE [Concomitant]
     Active Substance: TRAZODONE HYDROCHLORIDE
  7. RIZATRIPTAN. [Concomitant]
     Active Substance: RIZATRIPTAN
  8. AZTREONAM LYSINE [Suspect]
     Active Substance: AZTREONAM LYSINE
     Indication: CYSTIC FIBROSIS
     Dosage: 75 MG, TID
     Route: 055
     Dates: start: 20140610
  9. HYDROMORPHONE [Concomitant]
     Active Substance: HYDROMORPHONE
  10. SYMDEKO [Concomitant]
     Active Substance: IVACAFTOR\TEZACAFTOR
  11. AMITRIPTYLINE [Concomitant]
     Active Substance: AMITRIPTYLINE
  12. FLUOXETINE [Concomitant]
     Active Substance: FLUOXETINE HYDROCHLORIDE
  13. VENLAFAXINE [Concomitant]
     Active Substance: VENLAFAXINE HYDROCHLORIDE
  14. CIPRO [Concomitant]
     Active Substance: CIPROFLOXACIN HYDROCHLORIDE
  15. FLUTICASONE. [Concomitant]
     Active Substance: FLUTICASONE
  16. VENTOLINE [SALBUTAMOL] [Concomitant]
     Active Substance: ALBUTEROL SULFATE

REACTIONS (4)
  - Abdominal pain upper [Not Recovered/Not Resolved]
  - Cystic fibrosis [Unknown]
  - Tremor [Not Recovered/Not Resolved]
  - Nervousness [Not Recovered/Not Resolved]

NARRATIVE: CASE EVENT DATE: 20181206
